FAERS Safety Report 5307604-2 (Version None)
Quarter: 2007Q2

REPORT INFORMATION
  Report Type: 
  Country: None (occurrence: None)
  Receive Date: 20070425
  Receipt Date: 20070419
  Transmission Date: 20071010
  Serious: Yes (Other)
  Sender: FDA-Public Use
  Company Number: IT-ROXANE LABORATORIES, INC-2007-BP-05435RO

PATIENT
  Age: 4 Day
  Sex: Male
  Weight: 0.85 kg

DRUGS (4)
  1. SODIUM POLYSTYRENE SULFONATE [Suspect]
     Indication: HYPERKALAEMIA
     Dosage: 6.8 G OVER 24 HOURS
     Route: 054
  2. INSULIN [Concomitant]
  3. CALCIUM GLUCONATE [Concomitant]
  4. FUROSEMIDE [Concomitant]

REACTIONS (2)
  - ABDOMINAL DISTENSION [None]
  - NECROTISING COLITIS [None]
